FAERS Safety Report 4340205-1 (Version None)
Quarter: 2004Q2

REPORT INFORMATION
  Report Type: 
  Country: None (occurrence: None)
  Receive Date: 20040416
  Receipt Date: 20040409
  Transmission Date: 20050107
  Serious: Yes (Life-Threatening, Hospitalization)
  Sender: FDA-Public Use
  Company Number: US-MERCK-0404USA01120

PATIENT
  Age: 72 Year
  Sex: Male

DRUGS (13)
  1. LIPITOR [Concomitant]
     Route: 065
     Dates: start: 20010101, end: 20030801
  2. ZEBETA [Concomitant]
     Route: 065
  3. BUMEX [Concomitant]
     Route: 065
  4. AEROBID [Concomitant]
     Route: 065
  5. ATROVENT [Concomitant]
     Route: 065
  6. ISMO [Concomitant]
     Route: 065
  7. MEDROL [Concomitant]
     Route: 065
  8. ACTOS [Concomitant]
     Route: 065
  9. ACCUPRIL [Concomitant]
     Route: 065
  10. ZOCOR [Suspect]
     Indication: BLOOD CHOLESTEROL INCREASED
     Route: 048
     Dates: start: 20030801
  11. ULTRAM [Concomitant]
     Route: 065
  12. TRAZODONE HYDROCHLORIDE [Concomitant]
     Route: 065
  13. COUMADIN [Concomitant]
     Route: 065

REACTIONS (3)
  - DRUG HYPERSENSITIVITY [None]
  - RETCHING [None]
  - VOMITING [None]
